FAERS Safety Report 5522913-X (Version None)
Quarter: 2007Q4

REPORT INFORMATION
  Report Type: 
  Country: None (occurrence: None)
  Receive Date: 20071116
  Receipt Date: 20071105
  Transmission Date: 20080405
  Serious: Yes (Other)
  Sender: FDA-Public Use
  Company Number: 163871USA

PATIENT
  Age: 68 Year
  Sex: Female

DRUGS (1)
  1. BECLOMETHASONE DIPROPIONATE [Suspect]
     Dosage: 80 MCG (40 MCG,2 IN 1 D),RESPIRATORY (INHALATION)
     Route: 055
     Dates: end: 20070101

REACTIONS (2)
  - OESOPHAGEAL ULCER [None]
  - ORAL CANDIDIASIS [None]
